FAERS Safety Report 5619206-9 (Version None)
Quarter: 2008Q1

REPORT INFORMATION
  Report Type: 
  Country: None (occurrence: None)
  Receive Date: 20080207
  Receipt Date: 20080131
  Transmission Date: 20080703
  Serious: Yes (Life-Threatening, Hospitalization)
  Sender: FDA-Public Use
  Company Number: US-GILEAD-2008-0014880

PATIENT
  Sex: Male
  Weight: 95.34 kg

DRUGS (8)
  1. TRUVADA [Suspect]
     Indication: HIV INFECTION
     Route: 048
     Dates: start: 20071005, end: 20080106
  2. TMC125 [Suspect]
     Indication: HIV INFECTION
     Route: 048
     Dates: start: 20071005, end: 20080106
  3. PREZISTA [Suspect]
     Indication: HIV INFECTION
     Route: 048
     Dates: start: 20071005, end: 20080106
  4. RITONAVIR [Suspect]
     Indication: HIV INFECTION
     Route: 048
     Dates: start: 20071005, end: 20080106
  5. ATOVAQUONE [Concomitant]
     Route: 048
  6. AZITHROMYCIN [Concomitant]
     Indication: ANTIFUNGAL PROPHYLAXIS
     Route: 048
  7. FOLIC ACID [Concomitant]
     Route: 048
  8. MULTI-VITAMIN [Concomitant]
     Indication: MEDICAL DIET
     Route: 048

REACTIONS (2)
  - ACCIDENTAL OVERDOSE [None]
  - RENAL FAILURE ACUTE [None]
